FAERS Safety Report 24769021 (Version 5)
Quarter: 2025Q3

REPORT INFORMATION
  Report Type: Spontaneous
  Country: US (occurrence: US)
  Receive Date: 20241224
  Receipt Date: 20250930
  Transmission Date: 20251021
  Serious: No
  Sender: KARYOPHARM THERAPEUTICS
  Company Number: US-KARYOPHARM-2024KPT001919

PATIENT

DRUGS (13)
  1. XPOVIO [Suspect]
     Active Substance: SELINEXOR
     Indication: Plasma cell myeloma
     Route: 048
     Dates: start: 20231116
  2. XPOVIO [Suspect]
     Active Substance: SELINEXOR
     Route: 048
  3. XPOVIO [Suspect]
     Active Substance: SELINEXOR
     Route: 048
  4. ACYCLOVIR [Concomitant]
     Active Substance: ACYCLOVIR
  5. ASPIRIN [Concomitant]
     Active Substance: ASPIRIN
  6. CHOLESTYRAMINE [Concomitant]
     Active Substance: CHOLESTYRAMINE
  7. GABAPENTIN [Concomitant]
     Active Substance: GABAPENTIN
  8. LISINOPRIL [Concomitant]
     Active Substance: LISINOPRIL
  9. OLANZAPINE [Concomitant]
     Active Substance: OLANZAPINE
  10. PANTOPRAZOLE [Concomitant]
     Active Substance: PANTOPRAZOLE
  11. POMALYST [Concomitant]
     Active Substance: POMALIDOMIDE
  12. DARZALEX [Concomitant]
     Active Substance: DARATUMUMAB
  13. DEXAMETHASONE [Concomitant]
     Active Substance: DEXAMETHASONE

REACTIONS (5)
  - Pneumonia [Recovered/Resolved]
  - Fatigue [Not Recovered/Not Resolved]
  - Diarrhoea [Unknown]
  - Nausea [Recovering/Resolving]
  - Asthenia [Unknown]
